FAERS Safety Report 7671703-0 (Version None)
Quarter: 2011Q3

REPORT INFORMATION
  Report Type: 
  Country: None (occurrence: None)
  Receive Date: 20110804
  Receipt Date: 20110720
  Transmission Date: 20111222
  Serious: Yes (Disabling, Other)
  Sender: FDA-Public Use
  Company Number: TPA2011A03899

PATIENT
  Age: 78 Year
  Sex: Male
  Weight: 119.296 kg

DRUGS (8)
  1. ASPIRIN [Concomitant]
  2. LISINOPRIL [Concomitant]
  3. LEVOTHYROXINE SODIUM [Concomitant]
  4. HYDROCHLOROTHIAZIDE (HYDROCHLROTHIAZIDE) [Concomitant]
  5. ACTOS [Suspect]
     Indication: TYPE 2 DIABETES MELLITUS
     Dosage: 30 MG, 1 IN 1 D
     Dates: start: 20071101, end: 20080201
  6. SIMVASTATIN [Concomitant]
  7. LEVEMIR [Concomitant]
  8. GLIMEPIRIDE [Concomitant]

REACTIONS (1)
  - BLADDER TRANSITIONAL CELL CARCINOMA [None]
